FAERS Safety Report 24393184 (Version 2)
Quarter: 2025Q3

REPORT INFORMATION
  Report Type: Report from Study
  Country: SG (occurrence: SG)
  Receive Date: 20241003
  Receipt Date: 20250810
  Transmission Date: 20251020
  Serious: Yes (Other)
  Sender: ALEXION PHARMACEUTICALS
  Company Number: SG-AstraZeneca-CH-00710015A

PATIENT
  Sex: Female

DRUGS (1)
  1. OSIMERTINIB [Suspect]
     Active Substance: OSIMERTINIB
     Indication: Breast cancer female

REACTIONS (3)
  - Carcinoembryonic antigen increased [Unknown]
  - PIK3CA-activated mutation [Unknown]
  - Therapy cessation [Unknown]
